FAERS Safety Report 20549223 (Version 1)
Quarter: 2022Q1

REPORT INFORMATION
  Report Type: Spontaneous
  Country: US (occurrence: US)
  Receive Date: 20220303
  Receipt Date: 20220303
  Transmission Date: 20220423
  Serious: No
  Sender: FDA-Public Use
  Company Number: US-ALLERGAN-2125473US

PATIENT
  Age: 77 Year
  Sex: Female

DRUGS (18)
  1. RESTASIS [Suspect]
     Active Substance: CYCLOSPORINE
     Indication: Dry eye
     Dosage: 2 GTT, BID
     Route: 047
     Dates: start: 20210616
  2. CROMOLYN SODIUM [Concomitant]
     Active Substance: CROMOLYN SODIUM
     Indication: Urticaria pigmentosa
  3. FAMOTIDINE [Concomitant]
     Active Substance: FAMOTIDINE
  4. PANTOPRAZOLE [Concomitant]
     Active Substance: PANTOPRAZOLE
  5. CLARITIN [Concomitant]
     Active Substance: LORATADINE
  6. FOSAMAX [Concomitant]
     Active Substance: ALENDRONATE SODIUM
  7. OLMESARTAN [Concomitant]
     Active Substance: OLMESARTAN
  8. CALCIUM WITH VITAMIN D 3 [Concomitant]
  9. VITAMIN D3 [Concomitant]
     Active Substance: CHOLECALCIFEROL
  10. FLAXSEED [Concomitant]
     Active Substance: FLAX SEED
  11. FEXOFENADINE [Concomitant]
     Active Substance: FEXOFENADINE HYDROCHLORIDE
  12. Silver Multivitamin [Concomitant]
  13. FINACEA [Concomitant]
     Active Substance: AZELAIC ACID
  14. Elidil [Concomitant]
     Route: 061
  15. AQUAPHOR [Concomitant]
     Active Substance: PETROLATUM
     Route: 061
  16. AMMONIUM ACETATE [Concomitant]
     Active Substance: AMMONIUM ACETATE
  17. EPIPEN [Concomitant]
     Active Substance: EPINEPHRINE
     Dosage: AS NEEDED
  18. VALACYCLOVIR [Concomitant]
     Active Substance: VALACYCLOVIR HYDROCHLORIDE
     Dosage: AS NEEDED

REACTIONS (1)
  - Erythema [Recovering/Resolving]

NARRATIVE: CASE EVENT DATE: 20210618
